FAERS Safety Report 5934192-X (Version None)
Quarter: 2008Q4

REPORT INFORMATION
  Report Type: 
  Country: None (occurrence: None)
  Receive Date: 20081029
  Receipt Date: 20081027
  Transmission Date: 20090506
  Serious: Yes (Hospitalization, Other)
  Sender: FDA-Public Use
  Company Number: B0543994A

PATIENT
  Sex: Female

DRUGS (1)
  1. ZOVIRAX [Suspect]
     Indication: HERPES ZOSTER
     Dosage: 800MG FIVE TIMES PER DAY
     Route: 065

REACTIONS (4)
  - BRADYCARDIA [None]
  - DIZZINESS [None]
  - HYPOAESTHESIA [None]
  - VOMITING [None]
